FAERS Safety Report 8870900 (Version 4)
Quarter: 2013Q4

REPORT INFORMATION
  Report Type: Spontaneous
  Country: US (occurrence: None)
  Receive Date: 20121025
  Receipt Date: 20131029
  Transmission Date: 20140711
  Serious: Yes (Hospitalization)
  Sender: FDA-Public Use
  Company Number: ACO_32529_2012

PATIENT
  Age: 68 Year
  Sex: Female
  Weight: 67.1 kg

DRUGS (6)
  1. AMPYRA [Suspect]
     Indication: GAIT DISTURBANCE
     Dosage: 10 MG, BID, ORAL
     Route: 048
     Dates: start: 201108
  2. REBIF [Concomitant]
  3. CALCIUM (CALCIUM [Concomitant]
  4. EVISTA (RALOXIFENE HYDROCHLORIDE) [Concomitant]
  5. FISH OIL (FISH OIL) [Concomitant]
  6. MULTIVITAMIN (VITAMINS NOS) [Concomitant]

REACTIONS (10)
  - Clostridial infection [None]
  - Dehydration [None]
  - Electrolyte imbalance [None]
  - Blood potassium decreased [None]
  - Multiple sclerosis relapse [None]
  - Cystitis [None]
  - Fall [None]
  - Urinary incontinence [None]
  - Balance disorder [None]
  - Dizziness [None]
